FAERS Safety Report 6687587-3 (Version None)
Quarter: 2010Q2

REPORT INFORMATION
  Report Type: 
  Country: None (occurrence: None)
  Receive Date: 20100419
  Receipt Date: 20100409
  Transmission Date: 20101027
  Serious: Yes (Hospitalization)
  Sender: FDA-Public Use
  Company Number: US-AMGEN-QUU405422

PATIENT
  Sex: Female

DRUGS (3)
  1. ENBREL [Suspect]
     Indication: RHEUMATOID ARTHRITIS
     Route: 058
  2. METHOTREXATE [Concomitant]
     Route: 048
  3. HUMIRA [Concomitant]

REACTIONS (12)
  - ARTHRALGIA [None]
  - COUGH [None]
  - DYSPEPSIA [None]
  - HAND DEFORMITY [None]
  - HEADACHE [None]
  - JOINT RANGE OF MOTION DECREASED [None]
  - KNEE DEFORMITY [None]
  - NASOPHARYNGITIS [None]
  - PRODUCTIVE COUGH [None]
  - RHEUMATOID ARTHRITIS [None]
  - TOOTH INFECTION [None]
  - WHEEZING [None]
